FAERS Safety Report 4290471-6 (Version None)
Quarter: 2004Q1

REPORT INFORMATION
  Report Type: 
  Country: None (occurrence: None)
  Receive Date: 20040209
  Receipt Date: 20040202
  Transmission Date: 20041129
  Serious: Yes (Hospitalization, Other)
  Sender: FDA-Public Use
  Company Number: 200410372GDS

PATIENT
  Age: 68 Year
  Sex: Female

DRUGS (2)
  1. CIPROFLOXACIN [Suspect]
     Indication: URINARY TRACT INFECTION
     Dosage: 500 MG, BID, ORAL
     Route: 048
  2. PHENPROCOUMON [Concomitant]

REACTIONS (7)
  - ALVEOLITIS ALLERGIC [None]
  - BACTERIAL INFECTION [None]
  - DEEP VEIN THROMBOSIS [None]
  - LEUKOCYTOSIS [None]
  - LYMPHOCYTOSIS [None]
  - PNEUMONITIS [None]
  - RESPIRATORY FAILURE [None]
